FAERS Safety Report 15295549 (Version 1)
Quarter: 2018Q3

REPORT INFORMATION
  Report Type: Spontaneous
  Country: US (occurrence: US)
  Receive Date: 20180807
  Receipt Date: 20180807
  Transmission Date: 20181010
  Serious: Yes (Life-Threatening, Disabling)
  Sender: FDA-Public Use
  Company Number: None

PATIENT
  Age: 88 Year
  Sex: Male
  Weight: 80.74 kg

DRUGS (10)
  1. HYDROXYZINE HCL [Concomitant]
     Active Substance: HYDROXYZINE HYDROCHLORIDE
  2. ASPIRIN CREAM [Concomitant]
  3. BENADRYL [Concomitant]
     Active Substance: DIPHENHYDRAMINE HYDROCHLORIDE
  4. CRESTOR [Concomitant]
     Active Substance: ROSUVASTATIN CALCIUM
  5. EVEROLIMUS. [Suspect]
     Active Substance: EVEROLIMUS
     Indication: CORONARY ARTERY OCCLUSION
     Dosage: ?          OTHER FREQUENCY:IMPLANT;OTHER ROUTE:SURGERY?
     Dates: start: 20170331
  6. CETA PHIL TOPICAL CREAM [Concomitant]
  7. ZYRTEC [Concomitant]
     Active Substance: CETIRIZINE HYDROCHLORIDE
  8. METOPROLOL TARTRATE. [Concomitant]
     Active Substance: METOPROLOL TARTRATE
  9. LASIX [Concomitant]
     Active Substance: FUROSEMIDE
  10. PREDNISONE. [Concomitant]
     Active Substance: PREDNISONE

REACTIONS (17)
  - Eye injury [None]
  - Pruritus [None]
  - Rash [None]
  - General physical health deterioration [None]
  - Alopecia [None]
  - Coronary arterial stent insertion [None]
  - Weight increased [None]
  - Malaise [None]
  - Oedema [None]
  - Oedema peripheral [None]
  - Eye swelling [None]
  - Reaction to excipient [None]
  - Dyspnoea [None]
  - Hypersensitivity [None]
  - Cushingoid [None]
  - Fall [None]
  - Walking aid user [None]

NARRATIVE: CASE EVENT DATE: 20170331
